FAERS Safety Report 18172909 (Version 2)
Quarter: 2021Q1

REPORT INFORMATION
  Report Type: Report from Study
  Country: US (occurrence: US)
  Receive Date: 20200819
  Receipt Date: 20210215
  Transmission Date: 20210419
  Serious: Yes (Other)
  Sender: FDA-Public Use
  Company Number: NVSC2020US227005

PATIENT
  Sex: Male

DRUGS (2)
  1. MEKINIST [Suspect]
     Active Substance: TRAMETINIB DIMETHYL SULFOXIDE
     Indication: BRAIN NEOPLASM MALIGNANT
     Dosage: 1 DF, QD
     Route: 048
  2. MEKINIST [Suspect]
     Active Substance: TRAMETINIB DIMETHYL SULFOXIDE
     Dosage: 2 MG(TAKE 1 TABLET BY MOUTH ONCE A DAY)
     Route: 048

REACTIONS (9)
  - Malignant melanoma [Unknown]
  - Nervousness [Unknown]
  - Pulmonary mass [Unknown]
  - Fatigue [Unknown]
  - Malignant neoplasm progression [Unknown]
  - Balance disorder [Unknown]
  - Product dose omission issue [Unknown]
  - Feeling jittery [Unknown]
  - Product use in unapproved indication [Unknown]
